APPROVED DRUG PRODUCT: PRAMIPEXOLE DIHYDROCHLORIDE
Active Ingredient: PRAMIPEXOLE DIHYDROCHLORIDE
Strength: 0.125MG
Dosage Form/Route: TABLET;ORAL
Application: A203855 | Product #001 | TE Code: AB
Applicant: SCIEGEN PHARMACEUTICALS INC
Approved: Oct 28, 2014 | RLD: No | RS: No | Type: RX